FAERS Safety Report 19359346 (Version 1)
Quarter: 2021Q2

REPORT INFORMATION
  Report Type: Spontaneous
  Country: KR (occurrence: KR)
  Receive Date: 20210602
  Receipt Date: 20210602
  Transmission Date: 20210717
  Serious: Yes (Life-Threatening, Other)
  Sender: FDA-Public Use
  Company Number: KR-SUN PHARMACEUTICAL INDUSTRIES LTD-2021R1-298856

PATIENT
  Age: 51 Year
  Sex: Male

DRUGS (11)
  1. MIDAZOLAM. [Suspect]
     Active Substance: MIDAZOLAM
     Indication: IRRITABILITY
     Dosage: 5 MILLIGRAM
     Route: 065
  2. OLANZAPINE. [Suspect]
     Active Substance: OLANZAPINE
     Indication: IRRITABILITY
     Dosage: UNK
     Route: 065
  3. OLANZAPINE. [Suspect]
     Active Substance: OLANZAPINE
     Indication: AGGRESSION
  4. MEPERIDINE [Suspect]
     Active Substance: MEPERIDINE
     Indication: IRRITABILITY
     Dosage: UNK
     Route: 065
  5. DEXMEDETOMIDINE. [Suspect]
     Active Substance: DEXMEDETOMIDINE
     Indication: IRRITABILITY
     Dosage: 0.2 MCG/KG/H
     Route: 042
  6. MIDAZOLAM. [Suspect]
     Active Substance: MIDAZOLAM
     Indication: AGGRESSION
  7. REMIFENTANIL [Suspect]
     Active Substance: REMIFENTANIL
     Indication: SEDATION
     Dosage: 0.1 MCG/KG/MIN
     Route: 065
  8. DEXMEDETOMIDINE. [Suspect]
     Active Substance: DEXMEDETOMIDINE
     Indication: AGGRESSION
     Dosage: 0.4 MCG/KG/H
     Route: 042
  9. MEPERIDINE [Suspect]
     Active Substance: MEPERIDINE
     Indication: AGGRESSION
  10. HALOPERIDOL. [Suspect]
     Active Substance: HALOPERIDOL
     Indication: IRRITABILITY
     Dosage: UNK
     Route: 065
  11. HALOPERIDOL. [Suspect]
     Active Substance: HALOPERIDOL
     Indication: AGGRESSION

REACTIONS (2)
  - Bradycardia [Unknown]
  - Cardiac arrest [Recovered/Resolved]
